FAERS Safety Report 25416624 (Version 1)
Quarter: 2025Q2

REPORT INFORMATION
  Report Type: Spontaneous
  Country: US (occurrence: US)
  Receive Date: 20250610
  Receipt Date: 20250610
  Transmission Date: 20250716
  Serious: No
  Sender: LUPIN
  Company Number: US-LUPIN PHARMACEUTICALS INC.-2025-04497

PATIENT
  Age: 5 Month

DRUGS (1)
  1. OSELTAMIVIR PHOSPHATE [Suspect]
     Active Substance: OSELTAMIVIR PHOSPHATE
     Indication: Influenza
     Dosage: 4.4 MILLILITER, BID

REACTIONS (3)
  - Vomiting [Not Recovered/Not Resolved]
  - Expired product administered [Unknown]
  - Recalled product administered [Unknown]
